FAERS Safety Report 4529777-1 (Version None)
Quarter: 2004Q4

REPORT INFORMATION
  Report Type: 
  Country: None (occurrence: None)
  Receive Date: 20041126
  Receipt Date: 20040907
  Transmission Date: 20050328
  Serious: No
  Sender: FDA-Public Use
  Company Number: SU-2004-002653

PATIENT
  Age: 50 Year
  Sex: Female
  Weight: 77.5651 kg

DRUGS (4)
  1. BENICAR [Suspect]
     Indication: HYPERTENSION
     Dosage: 20 MG QD PO
     Route: 048
     Dates: start: 20030904, end: 20040823
  2. CELEBREX [Concomitant]
  3. ULTRACET [Concomitant]
  4. ZYRTEC-D 12 HOUR [Concomitant]

REACTIONS (2)
  - BLOOD PRESSURE DECREASED [None]
  - DIZZINESS [None]
